FAERS Safety Report 17007788 (Version 1)
Quarter: 2019Q4

REPORT INFORMATION
  Report Type: Spontaneous
  Country: GB (occurrence: GB)
  Receive Date: 20191108
  Receipt Date: 20191108
  Transmission Date: 20200122
  Serious: Yes (Hospitalization, Disabling, Other)
  Sender: FDA-Public Use
  Company Number: GB-AMGEN-GBRSP2019182134

PATIENT
  Age: 52 Year
  Sex: Female
  Weight: 45 kg

DRUGS (13)
  1. FUROSEMIDE. [Concomitant]
     Active Substance: FUROSEMIDE
  2. CLONAZEPAM. [Concomitant]
     Active Substance: CLONAZEPAM
  3. PRUCALOPRIDE [Concomitant]
     Active Substance: PRUCALOPRIDE
  4. ALFACALCIDOL [Concomitant]
     Active Substance: ALFACALCIDOL
  5. ACETYLSALICYLIC ACID [Concomitant]
     Active Substance: ASPIRIN
  6. OMEPRAZOLE MAGNESIUM. [Concomitant]
     Active Substance: OMEPRAZOLE MAGNESIUM
  7. CHLORPHENAMINE [Concomitant]
     Active Substance: CHLORPHENIRAMINE MALEATE
  8. VENLAFAXINE [Concomitant]
     Active Substance: VENLAFAXINE HYDROCHLORIDE
  9. SEVELAMER [Concomitant]
     Active Substance: SEVELAMER
  10. RENAVIT [Concomitant]
  11. PROLIA [Suspect]
     Active Substance: DENOSUMAB
     Indication: OSTEOPOROSIS
     Dosage: UNK
     Route: 051
     Dates: start: 20180201, end: 20180201
  12. PREGABALIN. [Concomitant]
     Active Substance: PREGABALIN
  13. LEVOTHYROXINE. [Concomitant]
     Active Substance: LEVOTHYROXINE

REACTIONS (3)
  - Hip fracture [Recovering/Resolving]
  - Blood calcium decreased [Not Recovered/Not Resolved]
  - Arthralgia [Recovering/Resolving]

NARRATIVE: CASE EVENT DATE: 20180202
